FAERS Safety Report 18667035 (Version 4)
Quarter: 2021Q1

REPORT INFORMATION
  Report Type: Spontaneous
  Country: IT (occurrence: IT)
  Receive Date: 20201228
  Receipt Date: 20210205
  Transmission Date: 20210419
  Serious: Yes (Other)
  Sender: FDA-Public Use
  Company Number: IT-AUROBINDO-AUR-APL-2020-063059

PATIENT
  Age: 54 Year
  Sex: Female
  Weight: 54 kg

DRUGS (12)
  1. TROSYD [Suspect]
     Active Substance: TIOCONAZOLE
     Indication: ONYCHOMYCOSIS
     Dosage: 28 PERCENT
     Route: 065
  2. DIFLUCORTOLONE VALERATE;ISOCONAZOLE NITRATE [Suspect]
     Active Substance: DIFLUCORTOLONE VALERATE\ISOCONAZOLE NITRATE
     Indication: ECZEMA
     Dosage: UNK
     Route: 061
  3. TROSYD [Suspect]
     Active Substance: TIOCONAZOLE
     Indication: ONYCHOMYCOSIS
     Dosage: UNK UNK, ONCE A DAY
     Route: 061
     Dates: start: 20200427, end: 20200515
  4. ROBILAS [Concomitant]
     Active Substance: BILASTINE
     Indication: FUNGAL INFECTION
     Dosage: UNK
     Route: 048
     Dates: start: 20200521
  5. TIOCONAZOLE. [Suspect]
     Active Substance: TIOCONAZOLE
     Indication: FUNGAL INFECTION
     Dosage: 1 PERCENT
     Route: 061
     Dates: start: 20200515, end: 20200525
  6. ECONAZOLE NITRATE. [Concomitant]
     Active Substance: ECONAZOLE NITRATE
     Indication: FUNGAL INFECTION
     Dosage: 1 PERCENT (1 PERCENT AQ)
     Route: 065
  7. FLUCONAZOLE. [Suspect]
     Active Substance: FLUCONAZOLE
     Indication: FUNGAL INFECTION
  8. TRAVOCORT [Concomitant]
     Active Substance: DIFLUCORTOLONE VALERATE\ISOCONAZOLE NITRATE
     Indication: FUNGAL INFECTION
     Dosage: UNK
     Route: 061
  9. TIOCONAZOLE. [Suspect]
     Active Substance: TIOCONAZOLE
     Indication: ONYCHOMYCOSIS
  10. FLUCONAZOLE. [Suspect]
     Active Substance: FLUCONAZOLE
     Indication: ECZEMA
     Dosage: UNK
     Route: 048
     Dates: start: 20200521, end: 20200525
  11. DIFLUCORTOLONE VALERATE [Concomitant]
     Active Substance: DIFLUCORTOLONE VALERATE
     Indication: ECZEMA
     Dosage: UNK
     Route: 061
  12. MICONAZOLE. [Concomitant]
     Active Substance: MICONAZOLE
     Indication: FUNGAL INFECTION
     Dosage: 1 PERCENT (AQ)
     Route: 065

REACTIONS (3)
  - Rash [Recovered/Resolved]
  - Dermatitis contact [Unknown]
  - Therapeutic product cross-reactivity [Recovered/Resolved]

NARRATIVE: CASE EVENT DATE: 20200523
